FAERS Safety Report 20353982 (Version 2)
Quarter: 2022Q1

REPORT INFORMATION
  Report Type: Other
  Country: KR (occurrence: None)
  Receive Date: 20220120
  Receipt Date: 20220331
  Transmission Date: 20220423
  Serious: Yes (Other)
  Sender: FDA-Public Use
  Company Number: KR-ROCHE-3001879

PATIENT

DRUGS (2)
  1. TRASTUZUMAB [Suspect]
     Active Substance: TRASTUZUMAB
     Indication: Gastric cancer
     Dosage: ON DAY 1 OF THE FIRST CYCLE
     Route: 042
  2. TRASTUZUMAB [Suspect]
     Active Substance: TRASTUZUMAB
     Route: 042

REACTIONS (20)
  - Anaemia [Unknown]
  - Leukopenia [Unknown]
  - Neutropenia [Unknown]
  - Thrombocytopenia [Unknown]
  - Febrile neutropenia [Unknown]
  - Nausea [Unknown]
  - Vomiting [Unknown]
  - Stomatitis [Unknown]
  - Hyperbilirubinaemia [Unknown]
  - Cardiac failure [Unknown]
  - Neuropathy peripheral [Unknown]
  - Blood creatinine increased [Unknown]
  - Constipation [Unknown]
  - Diarrhoea [Unknown]
  - Palmar-plantar erythrodysaesthesia syndrome [Unknown]
  - Aspartate aminotransferase increased [Unknown]
  - Alanine aminotransferase increased [Unknown]
  - Decreased appetite [Unknown]
  - Fatigue [Unknown]
  - Ejection fraction decreased [Unknown]
